FAERS Safety Report 8410842 (Version 2)
Quarter: 2013Q2

REPORT INFORMATION
  Report Type: Spontaneous
  Country: US (occurrence: None)
  Receive Date: 20111227
  Receipt Date: 20120703
  Transmission Date: 20140414
  Serious: No
  Sender: FDA-Public Use
  Company Number: PHEH2011US03608

PATIENT
  Age: 71 Year
  Sex: Female
  Weight: 99.8 kg

DRUGS (5)
  1. GILENYA [Suspect]
     Indication: MULTIPLE SCLEROSIS
     Route: 048
     Dates: start: 201108, end: 201109
  2. DIOVAN [Concomitant]
  3. AMLODIPINE [Concomitant]
  4. CYMBALTA [Concomitant]
  5. PREMARIN [Concomitant]

REACTIONS (7)
  - FLUID RETENTION [None]
  - Glucose tolerance impaired [None]
  - Anaemia [None]
  - Dyspnoea [None]
  - Swelling [None]
  - Headache [None]
  - Cough [None]
